FAERS Safety Report 5235453-2 (Version None)
Quarter: 2007Q1

REPORT INFORMATION
  Report Type: 
  Country: None (occurrence: None)
  Receive Date: 20070212
  Receipt Date: 20070202
  Transmission Date: 20070707
  Serious: Yes (Death, Hospitalization)
  Sender: FDA-Public Use
  Company Number: IE-BRISTOL-MYERS SQUIBB COMPANY-13239579

PATIENT
  Age: 67 Year
  Sex: Female

DRUGS (19)
  1. CETUXIMAB [Suspect]
     Indication: NON-SMALL CELL LUNG CANCER
     Dosage: MOST RECENT INFUSION 21-OCT-05 (6TH INFUSION).
     Route: 041
     Dates: start: 20050826
  2. CISPLATIN [Suspect]
     Indication: NON-SMALL CELL LUNG CANCER
     Dosage: MOST RECENT INFUSION 14-OCT-05 (2ND INFUSION).
     Route: 042
     Dates: start: 20050826
  3. VINORELBINE [Suspect]
     Indication: NON-SMALL CELL LUNG CANCER
     Dosage: MOST RECENT INFUSION 14-OCT-05 (4TH INFUSION).
     Route: 042
     Dates: start: 20050916
  4. LEVOFLOXACIN [Concomitant]
     Dates: start: 20051023, end: 20051028
  5. PREDNISOLONE [Concomitant]
     Dates: start: 20051026, end: 20051026
  6. CORSODYL [Concomitant]
  7. MYCOSTATIN [Concomitant]
  8. SODIUM CHLORIDE [Concomitant]
  9. ZOFRAN [Concomitant]
  10. EMEND [Concomitant]
  11. DEXAMETHASONE TAB [Concomitant]
  12. PARACETAMOL [Concomitant]
  13. PIRITON [Concomitant]
  14. ZOCOR [Concomitant]
  15. MOTILIUM [Concomitant]
  16. CYCLIZINE [Concomitant]
  17. LANSOPRAZOLE [Concomitant]
  18. SENNA [Concomitant]
  19. TRAMADOL HCL [Concomitant]

REACTIONS (2)
  - NEUTROPENIA [None]
  - PULMONARY EMBOLISM [None]
